FAERS Safety Report 6907035-5 (Version None)
Quarter: 2010Q3

REPORT INFORMATION
  Report Type: 
  Country: None (occurrence: None)
  Receive Date: 20100804
  Receipt Date: 20080613
  Transmission Date: 20110219
  Serious: Yes (Hospitalization)
  Sender: FDA-Public Use
  Company Number: IT-PFIZER INC-2008046649

PATIENT
  Sex: Male
  Weight: 72 kg

DRUGS (6)
  1. MARAVIROC [Suspect]
     Indication: HIV INFECTION
     Route: 048
     Dates: start: 20080318
  2. RALTEGRAVIR [Concomitant]
     Route: 048
     Dates: start: 20080318
  3. ETRAVIRINE [Concomitant]
     Route: 048
     Dates: start: 20080418
  4. BACTRIM [Concomitant]
     Route: 048
     Dates: start: 20070918
  5. FLUCONAZOLE [Concomitant]
     Route: 048
     Dates: start: 20080205
  6. AZITHROMYCIN [Concomitant]
     Route: 048
     Dates: start: 20080205

REACTIONS (1)
  - PANCREATITIS [None]
